FAERS Safety Report 22957273 (Version 2)
Quarter: 2023Q4

REPORT INFORMATION
  Report Type: Report from Study
  Country: DE (occurrence: DE)
  Receive Date: 20230919
  Receipt Date: 20231109
  Transmission Date: 20240109
  Serious: Yes (Death, Hospitalization)
  Sender: FDA-Public Use
  Company Number: DE-JNJFOC-20230904244

PATIENT
  Age: 8 Decade
  Sex: Male

DRUGS (1)
  1. LENALIDOMIDE [Suspect]
     Active Substance: LENALIDOMIDE
     Indication: Plasma cell myeloma
     Dosage: 15 MILLIGRAM
     Route: 048
     Dates: start: 20210623

REACTIONS (7)
  - Death [Fatal]
  - Hospitalisation [Unknown]
  - Disturbance in attention [Unknown]
  - Hypoaesthesia [Unknown]
  - Arthralgia [Unknown]
  - Asthenia [Unknown]
  - Dizziness [Recovered/Resolved]
